FAERS Safety Report 6392019-9 (Version None)
Quarter: 2009Q4

REPORT INFORMATION
  Report Type: 
  Country: None (occurrence: None)
  Receive Date: 20091007
  Receipt Date: 20090929
  Transmission Date: 20100525
  Serious: Yes (Other)
  Sender: FDA-Public Use
  Company Number: GB-ROCHE-659670

PATIENT
  Age: 53 Year
  Sex: Male

DRUGS (6)
  1. TAMIFLU [Suspect]
     Indication: DRUG USE FOR UNKNOWN INDICATION
     Route: 065
     Dates: start: 20090925, end: 20090927
  2. ACETAMINOPHEN [Concomitant]
  3. SINUTAB [Concomitant]
  4. IBUPROFEN [Concomitant]
  5. PREDNISOLONE [Concomitant]
  6. AMOXIL [Concomitant]

REACTIONS (2)
  - HALLUCINATIONS, MIXED [None]
  - SLEEP DISORDER [None]
